FAERS Safety Report 5905717-5 (Version None)
Quarter: 2008Q4

REPORT INFORMATION
  Report Type: 
  Country: None (occurrence: None)
  Receive Date: 20081002
  Receipt Date: 20080925
  Transmission Date: 20090506
  Serious: Yes (Death, Hospitalization)
  Sender: FDA-Public Use
  Company Number: PHHO1996FR03135

PATIENT
  Sex: Male

DRUGS (1)
  1. NEORAL [Suspect]
     Dosage: UNSPECIFIED
     Route: 048
     Dates: start: 19960319, end: 19960604

REACTIONS (3)
  - CORONARY ARTERY DISEASE [None]
  - DEATH [None]
  - TRANSPLANT REJECTION [None]
